FAERS Safety Report 13032362 (Version 1)
Quarter: 2016Q4

REPORT INFORMATION
  Report Type: Spontaneous
  Country: ZA (occurrence: ZA)
  Receive Date: 20161215
  Receipt Date: 20161215
  Transmission Date: 20170207
  Serious: Yes (Death)
  Sender: FDA-Public Use
  Company Number: ZA-PFIZER INC-2016581310

PATIENT
  Age: 80 Year
  Sex: Male

DRUGS (7)
  1. CARDURA XL [Suspect]
     Active Substance: DOXAZOSIN MESYLATE
     Indication: HYPERTENSION
     Dosage: 8 MG, 1X/DAY
     Route: 048
  2. RISPILET [Concomitant]
     Indication: SCHIZOPHRENIA
     Dosage: 0.5 MG, 1X/DAY
     Route: 048
  3. TRAMAZAC /00599201/ [Concomitant]
     Indication: PAIN
     Dosage: 2 TABLETS, 3X/DAY
     Route: 048
  4. BILOCOR [Concomitant]
     Active Substance: BISOPROLOL FUMARATE
     Indication: BLOOD PRESSURE MANAGEMENT
     Dosage: 10 MG, 1X/DAY
     Route: 048
  5. EPILIZINE CR [Concomitant]
     Active Substance: VALPROATE SODIUM
     Indication: EPILEPSY
     Dosage: 500 MG, 1X/DAY
     Route: 048
  6. ZOXADON [Concomitant]
     Indication: SCHIZOPHRENIA
     Dosage: 1 MG, 1X/DAY
     Route: 048
  7. ASPAVOR [Concomitant]
     Active Substance: ATORVASTATIN
     Indication: HYPERCHOLESTEROLAEMIA
     Dosage: 40 MG, 1X/DAY
     Route: 048

REACTIONS (1)
  - Death [Fatal]

NARRATIVE: CASE EVENT DATE: 20161211
